FAERS Safety Report 8290692-1 (Version None)
Quarter: 2012Q2

REPORT INFORMATION
  Report Type: 
  Country: None (occurrence: None)
  Receive Date: 20120417
  Receipt Date: 20110323
  Transmission Date: 20120825
  Serious: No
  Sender: FDA-Public Use
  Company Number: US-ASTRAZENECA-2010SE53987

PATIENT
  Age: 40 Year
  Sex: Male

DRUGS (3)
  1. TAGAMET [Concomitant]
  2. NEXIUM [Suspect]
     Route: 048
  3. PRILOSEC [Suspect]
     Route: 048

REACTIONS (9)
  - GASTRIC ULCER [None]
  - MALAISE [None]
  - ABDOMINAL PAIN UPPER [None]
  - MIGRAINE [None]
  - DRUG EFFECT DECREASED [None]
  - GASTROOESOPHAGEAL REFLUX DISEASE [None]
  - DRUG DOSE OMISSION [None]
  - HAEMATOCHEZIA [None]
  - CHOKING [None]
